FAERS Safety Report 17945307 (Version 1)
Quarter: 2020Q2

REPORT INFORMATION
  Report Type: Spontaneous
  Country: US (occurrence: US)
  Receive Date: 20200625
  Receipt Date: 20200625
  Transmission Date: 20200714
  Serious: No
  Sender: FDA-Public Use
  Company Number: US-CADILA HEALTHCARE LIMITED-US-ZYDUS-048847

PATIENT

DRUGS (4)
  1. VITAMIN D [Concomitant]
     Active Substance: VITAMIN D NOS
     Indication: AORTIC STENOSIS
     Dosage: 800 INTERNATIONAL UNIT,FREQUENCY :DAILY
     Route: 065
     Dates: start: 201903
  2. TAMSULOSIN [Suspect]
     Active Substance: TAMSULOSIN
     Indication: NEPHROLITHIASIS
     Dosage: FREQUENCY :UNKNOWN
     Route: 048
     Dates: start: 2020
  3. HYDROCHLOROTHIAZIDE. [Suspect]
     Active Substance: HYDROCHLOROTHIAZIDE
     Indication: PRODUCT USED FOR UNKNOWN INDICATION
     Dosage: FREQUENCY :UNKNOWN
     Route: 065
     Dates: start: 2020, end: 2020
  4. VITAMIN K3 [Concomitant]
     Indication: AORTIC STENOSIS
     Dosage: 1 MILLIGRAM,FREQUENCY :DAILY
     Route: 065
     Dates: start: 201903

REACTIONS (4)
  - Tachycardia [Unknown]
  - Product use in unapproved indication [Unknown]
  - Sinus arrhythmia [Unknown]
  - Dizziness [Unknown]

NARRATIVE: CASE EVENT DATE: 2020
